FAERS Safety Report 14980463 (Version 1)
Quarter: 2018Q2

REPORT INFORMATION
  Report Type: Spontaneous
  Country: US (occurrence: US)
  Receive Date: 20180606
  Receipt Date: 20180606
  Transmission Date: 20180711
  Serious: Yes (Other)
  Sender: FDA-Public Use
  Company Number: US-BEH-2018091363

PATIENT
  Age: 38 Year
  Sex: Male
  Weight: 76.19 kg

DRUGS (30)
  1. ZEMAIRA [Suspect]
     Active Substance: .ALPHA.1-PROTEINASE INHIBITOR HUMAN
     Dosage: 60 MG/KG, QW
     Route: 042
  2. XANAX [Concomitant]
     Active Substance: ALPRAZOLAM
  3. FLUTICASONE. [Concomitant]
     Active Substance: FLUTICASONE
  4. INVOKANA [Concomitant]
     Active Substance: CANAGLIFLOZIN
  5. MONTELUKAST [Concomitant]
     Active Substance: MONTELUKAST SODIUM
  6. SYMBICORT [Concomitant]
     Active Substance: BUDESONIDE\FORMOTEROL FUMARATE DIHYDRATE
  7. PRAVASTATIN. [Concomitant]
     Active Substance: PRAVASTATIN
  8. PREDNISONE. [Concomitant]
     Active Substance: PREDNISONE
  9. VALACYCLOVIR [Concomitant]
     Active Substance: VALACYCLOVIR HYDROCHLORIDE
  10. JANUMET [Concomitant]
     Active Substance: METFORMIN HYDROCHLORIDE\SITAGLIPTIN PHOSPHATE
  11. METHOCARBAMOL. [Concomitant]
     Active Substance: METHOCARBAMOL
  12. HYDROCODONE BITARTRATE AND ACETAMINOPHEN [Concomitant]
     Active Substance: ACETAMINOPHEN\HYDROCODONE BITARTRATE
  13. ZEMAIRA [Suspect]
     Active Substance: .ALPHA.1-PROTEINASE INHIBITOR HUMAN
     Indication: ALPHA-1 ANTI-TRYPSIN DEFICIENCY
     Dosage: UNK
     Route: 042
  14. CITALOPRAM [Concomitant]
     Active Substance: CITALOPRAM HYDROBROMIDE
  15. ALBUTEROL                          /00139501/ [Concomitant]
     Active Substance: ALBUTEROL
  16. LMX                                /00033401/ [Concomitant]
  17. TESTOSTERONE CYPIONATE. [Concomitant]
     Active Substance: TESTOSTERONE CYPIONATE
  18. NITROGLYCERIN. [Concomitant]
     Active Substance: NITROGLYCERIN
  19. REPAGLINIDE. [Concomitant]
     Active Substance: REPAGLINIDE
  20. GABAPENTIN. [Concomitant]
     Active Substance: GABAPENTIN
  21. CAMBIA [Concomitant]
     Active Substance: DICLOFENAC POTASSIUM
  22. LISINOPRIL. [Concomitant]
     Active Substance: LISINOPRIL
  23. AMBIEN [Concomitant]
     Active Substance: ZOLPIDEM TARTRATE
  24. DIPHENHYDRAMINE. [Concomitant]
     Active Substance: DIPHENHYDRAMINE
  25. SODIUM CHLORIDE. [Concomitant]
     Active Substance: SODIUM CHLORIDE
  26. EPINEPHRINE. [Concomitant]
     Active Substance: EPINEPHRINE
  27. AMITRIPTYLINE [Concomitant]
     Active Substance: AMITRIPTYLINE
  28. CYCLOBENZAPRINE. [Concomitant]
     Active Substance: CYCLOBENZAPRINE
  29. OXYGEN. [Concomitant]
     Active Substance: OXYGEN
  30. TOPROL XL [Concomitant]
     Active Substance: METOPROLOL SUCCINATE

REACTIONS (3)
  - Contusion [Unknown]
  - Loss of consciousness [Unknown]
  - Cough [Unknown]

NARRATIVE: CASE EVENT DATE: 20180531
